FAERS Safety Report 7872577-5 (Version None)
Quarter: 2011Q4

REPORT INFORMATION
  Report Type: 
  Country: None (occurrence: None)
  Receive Date: 20111030
  Receipt Date: 20110428
  Transmission Date: 20120403
  Serious: No
  Sender: FDA-Public Use
  Company Number: US-AMGEN-USASP2011022151

PATIENT
  Sex: Female

DRUGS (15)
  1. VITAMIN D [Concomitant]
  2. PROTONIX [Concomitant]
     Dosage: 20 MG, UNK
  3. ULTRACET [Concomitant]
  4. AMITRIPTYLINE HCL [Concomitant]
     Dosage: 10 MG, UNK
  5. CALCIUM [Concomitant]
  6. STOOL SOFTENER [Concomitant]
     Dosage: 100 MG, UNK
  7. PREDNISONE [Concomitant]
     Dosage: 1 MG, UNK
  8. MULTIVITAMIN                       /00097801/ [Concomitant]
  9. SINGULAIR [Concomitant]
     Dosage: 10 MG, UNK
  10. SKELAXIN [Concomitant]
     Dosage: 800 MG, UNK
  11. SALAGEN [Concomitant]
     Dosage: 7.5 MG, UNK
  12. ENBREL [Suspect]
     Indication: PRODUCT USED FOR UNKNOWN INDICATION
     Dosage: 50 MG, QWK
     Route: 058
  13. LYRICA [Concomitant]
     Dosage: 75 MG, UNK
  14. FOLIC ACID [Concomitant]
     Dosage: 1 MG, UNK
  15. METHOTREXATE [Concomitant]
     Dosage: 25 MG, UNK

REACTIONS (1)
  - HEADACHE [None]
